FAERS Safety Report 10443421 (Version 2)
Quarter: 2014Q4

REPORT INFORMATION
  Report Type: Spontaneous
  Country: JP (occurrence: JP)
  Receive Date: 20140910
  Receipt Date: 20141014
  Transmission Date: 20150528
  Serious: Yes (Other)
  Sender: FDA-Public Use
  Company Number: JP-ROCHE-1457614

PATIENT
  Age: 59 Year
  Sex: Female
  Weight: 56 kg

DRUGS (13)
  1. DEXALTIN [Concomitant]
     Active Substance: DEXAMETHASONE
     Route: 061
  2. PRIMPERAN [Concomitant]
     Active Substance: METOCLOPRAMIDE HYDROCHLORIDE
     Route: 048
     Dates: start: 20140221
  3. ACINON [Concomitant]
     Active Substance: NIZATIDINE
     Route: 048
     Dates: start: 20140417
  4. MAGMITT [Concomitant]
     Active Substance: MAGNESIUM OXIDE
     Route: 048
     Dates: start: 20140221
  5. MYONAL (JAPAN) [Concomitant]
     Active Substance: EPERISONE HYDROCHLORIDE
     Route: 048
     Dates: end: 20140221
  6. PEGASYS [Suspect]
     Active Substance: PEGINTERFERON ALFA-2A
     Indication: CHRONIC HEPATITIS C
     Route: 058
     Dates: start: 20140220
  7. TRAMADOL [Concomitant]
     Active Substance: TRAMADOL
     Route: 048
     Dates: start: 20140221
  8. GOREISAN [Concomitant]
     Active Substance: HERBALS
     Dosage: POWDER
     Route: 048
     Dates: start: 20140221
  9. ETHYL ICOSAPENTATE [Concomitant]
     Active Substance: ETHYL ICOSAPENTATE
     Route: 048
     Dates: start: 20140220
  10. CELECOXIB. [Concomitant]
     Active Substance: CELECOXIB
     Route: 048
     Dates: start: 20140221
  11. COPEGUS [Suspect]
     Active Substance: RIBAVIRIN
     Indication: CHRONIC HEPATITIS C
     Dosage: 600 MG ONCE PER DAY
     Route: 048
  12. SENNOSIDE [Concomitant]
     Active Substance: SENNOSIDES
  13. SOVRIAD [Suspect]
     Active Substance: SIMEPREVIR
     Indication: CHRONIC HEPATITIS C
     Route: 048
     Dates: start: 20140220, end: 20140515

REACTIONS (9)
  - Glossodynia [Recovering/Resolving]
  - Arthralgia [Recovered/Resolved]
  - Hepatic steatosis [Unknown]
  - Alopecia [Recovered/Resolved]
  - Platelet count decreased [Unknown]
  - Stomatitis [Unknown]
  - Liver disorder [Unknown]
  - Fatigue [Recovered/Resolved]
  - Pruritus [Unknown]

NARRATIVE: CASE EVENT DATE: 20140319
